FAERS Safety Report 6550580-5 (Version None)
Quarter: 2010Q1

REPORT INFORMATION
  Report Type: 
  Country: None (occurrence: None)
  Receive Date: 20100125
  Receipt Date: 20100115
  Transmission Date: 20100710
  Serious: Yes (Life-Threatening, Hospitalization)
  Sender: FDA-Public Use
  Company Number: US-SANOFI-AVENTIS-2010SA001110

PATIENT
  Sex: Male
  Weight: 79 kg

DRUGS (11)
  1. PLAVIX [Suspect]
     Route: 048
     Dates: start: 20070320, end: 20070320
  2. INVESTIGATIONAL DRUG [Suspect]
     Route: 051
     Dates: start: 20070320, end: 20070320
  3. INVESTIGATIONAL DRUG [Suspect]
     Route: 051
     Dates: start: 20070320, end: 20070320
  4. PLACEBO [Suspect]
     Route: 048
     Dates: start: 20070320, end: 20070320
  5. HEPARIN [Concomitant]
  6. EPTIFIBATIDE [Concomitant]
  7. LISINOPRIL [Concomitant]
     Route: 065
     Dates: start: 20070319
  8. FUROSEMIDE [Concomitant]
     Route: 065
     Dates: start: 20070319
  9. ATENOLOL [Concomitant]
     Route: 065
     Dates: start: 20070319
  10. ASPIRIN [Concomitant]
     Route: 065
     Dates: start: 20070319
  11. DOFETILIDE [Concomitant]
     Route: 065
     Dates: start: 20070319

REACTIONS (1)
  - PULMONARY EMBOLISM [None]
